FAERS Safety Report 7417094-1 (Version None)
Quarter: 2011Q2

REPORT INFORMATION
  Report Type: 
  Country: None (occurrence: None)
  Receive Date: 20110406
  Receipt Date: 20110322
  Transmission Date: 20111010
  Serious: Yes (Hospitalization)
  Sender: FDA-Public Use
  Company Number: 027835

PATIENT
  Sex: Male
  Weight: 67 kg

DRUGS (3)
  1. LEVETIRACETAM [Concomitant]
  2. LACOSAMIDE [Suspect]
     Indication: EPILEPSY
     Dosage: (100 MG BID ORAL), (200 MG BID, 1-0-1-0 ORAL)
     Route: 048
     Dates: start: 20100330
  3. LAMICTAL [Concomitant]

REACTIONS (6)
  - BLOOD UREA INCREASED [None]
  - TREATMENT NONCOMPLIANCE [None]
  - UNRESPONSIVE TO STIMULI [None]
  - DEHYDRATION [None]
  - BLOOD CREATINE INCREASED [None]
  - CONVULSION [None]
